FAERS Safety Report 8026763-4 (Version None)
Quarter: 2012Q1

REPORT INFORMATION
  Report Type: 
  Country: None (occurrence: None)
  Receive Date: 20120106
  Receipt Date: 20111228
  Transmission Date: 20120608
  Serious: No
  Sender: FDA-Public Use
  Company Number: US-BIOGENIDEC-2011BI048937

PATIENT
  Age: 38 Year
  Sex: Male

DRUGS (1)
  1. AVONEX [Suspect]
     Indication: MULTIPLE SCLEROSIS
     Route: 030
     Dates: start: 20111130, end: 20111221

REACTIONS (4)
  - HYPERHIDROSIS [None]
  - LYMPHADENOPATHY [None]
  - NASOPHARYNGITIS [None]
  - INFLUENZA [None]
